FAERS Safety Report 9065006 (Version 1)
Quarter: 2013Q1

REPORT INFORMATION
  Report Type: Spontaneous
  Country: FR (occurrence: FR)
  Receive Date: 20130206
  Receipt Date: 20130206
  Transmission Date: 20140127
  Serious: Yes (Hospitalization)
  Sender: FDA-Public Use
  Company Number: FR-MERCK-1301FRA004350

PATIENT
  Age: 72 None
  Sex: Male

DRUGS (7)
  1. CHIBRO-PROSCAR [Suspect]
     Dosage: UNK
     Route: 048
  2. EZETROL [Suspect]
     Dosage: 1 DF, QD
     Route: 048
  3. VICTOZA [Suspect]
     Indication: TYPE 2 DIABETES MELLITUS
     Dosage: 1.2 MG, QD
     Route: 058
     Dates: start: 201112, end: 20121004
  4. AMAREL [Suspect]
     Indication: TYPE 2 DIABETES MELLITUS
     Dosage: 2 DF, QD
     Route: 048
     Dates: start: 201112, end: 20121004
  5. GLUCOPHAGE [Suspect]
     Dosage: 3 DF, QD
     Route: 048
  6. KARDEGIC [Suspect]
     Dosage: 1 DF, QD
     Route: 048
  7. COAPROVEL [Suspect]
     Dosage: 1 DF, QD
     Route: 048

REACTIONS (2)
  - Pancreatitis acute [Recovered/Resolved]
  - Pancreatitis acute [Recovered/Resolved]
